FAERS Safety Report 16310158 (Version 1)
Quarter: 2019Q2

REPORT INFORMATION
  Report Type: Report from Study
  Country: PE (occurrence: PE)
  Receive Date: 20190514
  Receipt Date: 20190514
  Transmission Date: 20190711
  Serious: Yes (Hospitalization)
  Sender: FDA-Public Use
  Company Number: PE-SEATTLE GENETICS-2019SGN01550

PATIENT
  Sex: Female

DRUGS (1)
  1. BRENTUXIMAB VEDOTIN-MPI [Suspect]
     Active Substance: BRENTUXIMAB VEDOTIN
     Indication: HODGKIN^S DISEASE
     Dosage: 198 MG, UNK
     Route: 042
     Dates: start: 20190323

REACTIONS (4)
  - Platelet count decreased [Unknown]
  - Inadequate diet [Unknown]
  - Asthenia [Unknown]
  - Nausea [Unknown]
